FAERS Safety Report 15214747 (Version 1)
Quarter: 2018Q3

REPORT INFORMATION
  Report Type: Spontaneous
  Country: NO (occurrence: NO)
  Receive Date: 20180730
  Receipt Date: 20180730
  Transmission Date: 20181010
  Serious: Yes (Life-Threatening, Hospitalization, Other)
  Sender: FDA-Public Use
  Company Number: NO-GLAXOSMITHKLINE-NO2018133916

PATIENT
  Age: 74 Year
  Sex: Male

DRUGS (7)
  1. PARACET [Concomitant]
     Active Substance: ACETAMINOPHEN
     Indication: PAIN
     Dosage: 1 G, Q6H
     Route: 048
     Dates: start: 20180413
  2. BENZYLPENICILLIN PANPHARMA [Concomitant]
     Active Substance: PENICILLIN G
     Dosage: 1.2 G, Q6H
     Route: 042
     Dates: start: 20180507, end: 20180511
  3. BENZYLPENICILLIN PANPHARMA [Concomitant]
     Active Substance: PENICILLIN G
     Indication: ARTHRITIS BACTERIAL
     Dosage: 1.2 G, Q6H
     Route: 042
     Dates: start: 20180420, end: 20180427
  4. BENZATHINE PHENOXYMETHYL PENICILLIN [Concomitant]
     Active Substance: PENICILLIN V BENZATHINE
     Indication: ARTHRITIS BACTERIAL
     Dosage: 1 G, Q6H
     Route: 048
     Dates: start: 20180427, end: 20180507
  5. VOLTAREN [Suspect]
     Active Substance: DICLOFENAC SODIUM
     Indication: POLYARTHRITIS
     Dosage: 50 MG, Q12H
     Route: 048
     Dates: start: 20180419, end: 20180505
  6. OXYCONTIN [Concomitant]
     Active Substance: OXYCODONE HYDROCHLORIDE
     Indication: PAIN
     Dosage: 10 MG, Q12H
     Route: 048
     Dates: start: 20180413
  7. FRAGMIN [Suspect]
     Active Substance: DALTEPARIN SODIUM
     Indication: ANTICOAGULANT THERAPY
     Dosage: 5000 IU, Q12H
     Route: 058
     Dates: start: 20180413, end: 20180509

REACTIONS (1)
  - Gastrointestinal haemorrhage [Recovering/Resolving]

NARRATIVE: CASE EVENT DATE: 20180507
